FAERS Safety Report 11122401 (Version 1)
Quarter: 2015Q2

REPORT INFORMATION
  Report Type: Spontaneous
  Country: US (occurrence: None)
  Receive Date: 20150518
  Receipt Date: 20150518
  Transmission Date: 20150821
  Serious: Yes (Disabling)
  Sender: FDA-Public Use
  Company Number: None

PATIENT
  Age: 31 Year
  Sex: Female
  Weight: 92.99 kg

DRUGS (23)
  1. FLEXERIL [Concomitant]
     Active Substance: CYCLOBENZAPRINE HYDROCHLORIDE
  2. DIAZEPAM. [Concomitant]
     Active Substance: DIAZEPAM
  3. VITAMIN B12 [Concomitant]
     Active Substance: CYANOCOBALAMIN
  4. XANAX [Concomitant]
     Active Substance: ALPRAZOLAM
  5. TENS UNIT [Concomitant]
  6. MORPHINE [Concomitant]
     Active Substance: MORPHINE
  7. DILAUDID [Concomitant]
     Active Substance: HYDROMORPHONE HYDROCHLORIDE
  8. TUMS [Concomitant]
     Active Substance: CALCIUM CARBONATE
  9. PLEGRIDY [Suspect]
     Active Substance: PEGINTERFERON BETA-1A
     Indication: MULTIPLE SCLEROSIS
     Dosage: 1 PRE-FILLED SYRINGE (125 MCG) EVERY 14 DAYS GIVEN INTO/UNDER THE SKIN
     Dates: start: 20150109, end: 20150403
  10. GABAPENTIN. [Concomitant]
     Active Substance: GABAPENTIN
  11. FLINSTONES MULTI-VITAMIN [Concomitant]
  12. STOOL SOFTENERS [Concomitant]
     Active Substance: UNSPECIFIED INGREDIENT
  13. ZOFRAN [Concomitant]
     Active Substance: ONDANSETRON HYDROCHLORIDE
  14. BUTALBITAL [Concomitant]
     Active Substance: BUTALBITAL
  15. OMEPRAZOLE. [Concomitant]
     Active Substance: OMEPRAZOLE
  16. PERCOCET [Concomitant]
     Active Substance: ACETAMINOPHEN\OXYCODONE HYDROCHLORIDE
  17. TYLENOL [Concomitant]
     Active Substance: ACETAMINOPHEN
  18. LYRICA [Concomitant]
     Active Substance: PREGABALIN
  19. BRINTELLIX [Concomitant]
     Active Substance: VORTIOXETINE HYDROBROMIDE
  20. LUNESTA [Concomitant]
     Active Substance: ESZOPICLONE
  21. VITAMIN D [Concomitant]
     Active Substance: CHOLECALCIFEROL
  22. MECLIZINE [Concomitant]
     Active Substance: MECLIZINE\MECLIZINE HYDROCHLORIDE
  23. GOODBELLY PROBIOTIC DRINK [Concomitant]

REACTIONS (11)
  - Pain [None]
  - Arthralgia [None]
  - Neuralgia [None]
  - Fatigue [None]
  - Back pain [None]
  - Headache [None]
  - Sleep disorder [None]
  - Influenza like illness [None]
  - Injection site reaction [None]
  - Muscle tightness [None]
  - Dysstasia [None]
